FAERS Safety Report 8917721 (Version 1)
Quarter: 2012Q4

REPORT INFORMATION
  Report Type: 
  Country: US (occurrence: US)
  Receive Date: 20121119
  Receipt Date: 20121119
  Transmission Date: 20130627
  Serious: No
  Sender: FDA-Public Use
  Company Number: US-009507513-1211USA004945

PATIENT
  Sex: Female

DRUGS (1)
  1. CLARITIN REDITABS [Suspect]
     Indication: BONE PAIN
     Dosage: UNK, Unknown
     Route: 048

REACTIONS (3)
  - Hot flush [Unknown]
  - Unevaluable event [Unknown]
  - Off label use [Unknown]
